FAERS Safety Report 12865163 (Version 1)
Quarter: 2016Q4

REPORT INFORMATION
  Report Type: Spontaneous
  Country: CN (occurrence: CN)
  Receive Date: 20161020
  Receipt Date: 20161020
  Transmission Date: 20170207
  Serious: Yes (Hospitalization, Other)
  Sender: FDA-Public Use
  Company Number: CN-VIIV HEALTHCARE LIMITED-CN2016GSK153318

PATIENT
  Sex: Male
  Weight: 50 kg

DRUGS (3)
  1. VIREAD [Suspect]
     Active Substance: TENOFOVIR DISOPROXIL FUMARATE
     Indication: HIV INFECTION
     Dosage: 300 MG, QD
     Route: 048
     Dates: start: 20160401, end: 20160808
  2. LAMIVUDINE. [Suspect]
     Active Substance: LAMIVUDINE
     Indication: HIV INFECTION
     Dosage: 1 DF, QD
     Route: 048
     Dates: start: 20160401, end: 20160808
  3. EFAVIRENZ [Suspect]
     Active Substance: EFAVIRENZ
     Indication: HIV INFECTION
     Dosage: 1 DF, QD
     Route: 048
     Dates: start: 20160401, end: 20160808

REACTIONS (7)
  - Anaemia [Recovering/Resolving]
  - Dizziness [Unknown]
  - Liver injury [Recovering/Resolving]
  - Asthenia [Recovering/Resolving]
  - Granulocytopenia [Recovering/Resolving]
  - Headache [Unknown]
  - Syncope [Unknown]
